FAERS Safety Report 6824869-6 (Version None)
Quarter: 2010Q3

REPORT INFORMATION
  Report Type: 
  Country: None (occurrence: None)
  Receive Date: 20100708
  Receipt Date: 20061121
  Transmission Date: 20110219
  Serious: No
  Sender: FDA-Public Use
  Company Number: US-PFIZER INC-2006147677

PATIENT
  Sex: Male
  Weight: 102.06 kg

DRUGS (5)
  1. CHANTIX [Suspect]
     Indication: SMOKING CESSATION THERAPY
     Route: 048
     Dates: start: 20061106
  2. ACETYLSALICYLIC ACID [Concomitant]
  3. ZETIA [Concomitant]
  4. CRESTOR [Concomitant]
  5. PLAVIX [Concomitant]

REACTIONS (2)
  - CONSTIPATION [None]
  - FLATULENCE [None]
